FAERS Safety Report 4305959-9 (Version None)
Quarter: 2004Q1

REPORT INFORMATION
  Report Type: 
  Country: None (occurrence: None)
  Receive Date: 20040225
  Receipt Date: 20040216
  Transmission Date: 20041129
  Serious: Yes (Hospitalization)
  Sender: FDA-Public Use
  Company Number: 2004GB00400

PATIENT
  Age: 66 Year
  Sex: Female

DRUGS (16)
  1. NEXIUM [Suspect]
     Indication: GASTROOESOPHAGEAL REFLUX DISEASE
     Dosage: 40 MG QAM PO
     Route: 048
     Dates: start: 20031229, end: 20040128
  2. WARFARIN SODIUM [Suspect]
     Indication: DEEP VEIN THROMBOSIS
     Dosage: VARIABLE
  3. WARFARIN SODIUM [Suspect]
     Indication: PULMONARY EMBOLISM
     Dosage: VARIABLE
  4. WARFARIN SODIUM [Suspect]
     Indication: DEEP VEIN THROMBOSIS
     Dates: start: 20040129
  5. WARFARIN SODIUM [Suspect]
     Indication: PULMONARY EMBOLISM
     Dates: start: 20040129
  6. HUMIDIFIED OXYGEN [Concomitant]
  7. SALBUTAMOL [Concomitant]
  8. ATROVENT [Concomitant]
  9. CARBAMAZEPINE [Concomitant]
  10. PERINDOPRIL [Concomitant]
  11. FRUSEMIDE [Concomitant]
  12. LANSOPRAZOLE [Concomitant]
  13. MESALAZINE [Concomitant]
  14. PREDNISOLONE [Concomitant]
  15. CELECOXIB [Concomitant]
  16. CEFIXIME [Concomitant]

REACTIONS (3)
  - FAECES DISCOLOURED [None]
  - HAEMOPTYSIS [None]
  - INTERNATIONAL NORMALISED RATIO INCREASED [None]
